FAERS Safety Report 5213248-3 (Version None)
Quarter: 2007Q1

REPORT INFORMATION
  Report Type: 
  Country: None (occurrence: None)
  Receive Date: 20070111
  Receipt Date: 20070104
  Transmission Date: 20070707
  Serious: Yes (Hospitalization)
  Sender: FDA-Public Use
  Company Number: 163-21880-06120613

PATIENT
  Age: 67 Year
  Sex: Male

DRUGS (4)
  1. REVLIMID [Suspect]
     Indication: MULTIPLE MYELOMA
     Dosage: 10 MG, X 21 DAYS EVERY 28 DAYS,
     Dates: start: 20060605
  2. ZOMETA [Suspect]
     Indication: DRUG USE FOR UNKNOWN INDICATION
  3. AVANDIA [Concomitant]
  4. NOVOLOG [Concomitant]

REACTIONS (5)
  - BLOOD CALCIUM DECREASED [None]
  - BLOOD POTASSIUM DECREASED [None]
  - CATHETER RELATED INFECTION [None]
  - CONVULSION [None]
  - URINARY TRACT INFECTION [None]
